FAERS Safety Report 16115185 (Version 1)
Quarter: 2019Q1

REPORT INFORMATION
  Report Type: Spontaneous
  Country: CN (occurrence: CN)
  Receive Date: 20190325
  Receipt Date: 20190325
  Transmission Date: 20190418
  Serious: Yes (Other)
  Sender: FDA-Public Use
  Company Number: CN-GLAXOSMITHKLINE-CN2019GSK048328

PATIENT
  Sex: Male

DRUGS (1)
  1. VOLTAREN [Suspect]
     Active Substance: DICLOFENAC SODIUM
     Indication: PAIN IN EXTREMITY
     Dosage: 3 DF, UNK, TABLET
     Route: 048
     Dates: start: 20190314

REACTIONS (2)
  - Chromaturia [Unknown]
  - Urinary retention [Unknown]

NARRATIVE: CASE EVENT DATE: 20190314
